FAERS Safety Report 6073646-5 (Version None)
Quarter: 2009Q1

REPORT INFORMATION
  Report Type: 
  Country: None (occurrence: None)
  Receive Date: 20090211
  Receipt Date: 20090202
  Transmission Date: 20090719
  Serious: Yes (Other)
  Sender: FDA-Public Use
  Company Number: US-KINGPHARMUSA00001-K200900110

PATIENT
  Age: 47 Year
  Sex: Female

DRUGS (2)
  1. SKELAXIN [Suspect]
     Indication: MUSCULOSKELETAL PAIN
     Dosage: 800 MG, TID
     Route: 048
     Dates: start: 20090108, end: 20090109
  2. ESTROGEN NOS [Concomitant]

REACTIONS (12)
  - BLADDER DISORDER [None]
  - BLOOD PRESSURE INCREASED [None]
  - DRY SKIN [None]
  - DYSPHAGIA [None]
  - FLUSHING [None]
  - HEART RATE INCREASED [None]
  - PERIPHERAL CIRCULATORY FAILURE [None]
  - PHARYNGEAL OEDEMA [None]
  - REBOUND EFFECT [None]
  - SKIN WRINKLING [None]
  - SWELLING FACE [None]
  - SWOLLEN TONGUE [None]
